FAERS Safety Report 12505346 (Version 1)
Quarter: 2016Q2

REPORT INFORMATION
  Report Type: Spontaneous
  Country: US (occurrence: US)
  Receive Date: 20160628
  Receipt Date: 20160628
  Transmission Date: 20160815
  Serious: No
  Sender: FDA-Public Use
  Company Number: US-PFIZER INC-3255293

PATIENT
  Sex: Female

DRUGS (3)
  1. HYDROMORPHONE HYDROCHLORIDE. [Suspect]
     Active Substance: HYDROMORPHONE HYDROCHLORIDE
     Indication: PROCEDURAL PAIN
     Dosage: 5 MG
     Route: 040
     Dates: start: 20160401
  2. NORCO [Concomitant]
     Active Substance: ACETAMINOPHEN\HYDROCODONE BITARTRATE
     Indication: PROCEDURAL PAIN
     Dosage: 1 DF, FREQ: AS NEEDED
     Route: 048
  3. CALCIUM CHLORIDE/POTASSIUM CHLORIDE/SODIUM LACTATE [Suspect]
     Active Substance: CALCIUM CHLORIDE\POTASSIUM CHLORIDE\SODIUM LACTATE
     Indication: CATHETER MANAGEMENT
     Dosage: 75 ML, CONTINUOUS, FREQ: 1 HOUR; INTERVAL: 1
     Route: 042

REACTIONS (2)
  - Poor quality drug administered [Recovered/Resolved]
  - Product colour issue [Recovered/Resolved]

NARRATIVE: CASE EVENT DATE: 20160401
